FAERS Safety Report 12167937 (Version 1)
Quarter: 2016Q1

REPORT INFORMATION
  Report Type: Spontaneous
  Country: US (occurrence: None)
  Receive Date: 20160309
  Receipt Date: 20160309
  Transmission Date: 20160526
  Serious: Yes (Other)
  Sender: FDA-Public Use
  Company Number: None

PATIENT
  Age: 73 Year
  Sex: Male
  Weight: 86.18 kg

DRUGS (8)
  1. SIMVASTATIN. [Concomitant]
     Active Substance: SIMVASTATIN
  2. BENAZEPRIL [Concomitant]
     Active Substance: BENAZEPRIL HYDROCHLORIDE
  3. PAROXETIN ER [Concomitant]
  4. VENTOLIN [Concomitant]
     Active Substance: ALBUTEROL SULFATE
  5. DIAZEPAM. [Concomitant]
     Active Substance: DIAZEPAM
  6. THEOPHYLINE ER [Concomitant]
  7. METROPROL [Concomitant]
  8. PROAIR HFA [Suspect]
     Active Substance: ALBUTEROL SULFATE
     Indication: ASTHMA
     Dosage: ONCE, DURING SLEEPING HOURS MOUTH
     Route: 048
     Dates: start: 20150626

REACTIONS (5)
  - Asthma [None]
  - Stupor [None]
  - Haemoptysis [None]
  - Somnolence [None]
  - Product contamination physical [None]

NARRATIVE: CASE EVENT DATE: 20150626
